FAERS Safety Report 12239338 (Version 1)
Quarter: 2016Q2

REPORT INFORMATION
  Report Type: Spontaneous
  Country: US (occurrence: US)
  Receive Date: 20160405
  Receipt Date: 20160405
  Transmission Date: 20160815
  Serious: No
  Sender: FDA-Public Use
  Company Number: US-TAKEDA-2016TUS004769

PATIENT
  Sex: Female
  Weight: 48.98 kg

DRUGS (5)
  1. IMURAN [Concomitant]
     Active Substance: AZATHIOPRINE
  2. ALPRAZOLAM. [Concomitant]
     Active Substance: ALPRAZOLAM
  3. ENTYVIO [Suspect]
     Active Substance: VEDOLIZUMAB
     Indication: CROHN^S DISEASE
     Dosage: UNK
     Route: 065
     Dates: start: 20150519
  4. PROTONIX                           /00661201/ [Concomitant]
     Active Substance: OMEPRAZOLE
  5. AZATHIOPRINE. [Concomitant]
     Active Substance: AZATHIOPRINE

REACTIONS (8)
  - Eye haemorrhage [Unknown]
  - Diarrhoea [Unknown]
  - Nasal congestion [Unknown]
  - Lower respiratory tract infection [Unknown]
  - Abdominal pain [Unknown]
  - Weight decreased [Unknown]
  - Eye pain [Unknown]
  - Rash pustular [Unknown]
